FAERS Safety Report 9101539 (Version 1)
Quarter: 2013Q1

REPORT INFORMATION
  Report Type: Report from Study
  Country: US (occurrence: US)
  Receive Date: 20130218
  Receipt Date: 20130218
  Transmission Date: 20140127
  Serious: No
  Sender: FDA-Public Use
  Company Number: US-ABBOTT-12P-163-0932434-00

PATIENT
  Sex: Male
  Weight: 90.8 kg

DRUGS (5)
  1. SIMCOR 1000MG/40MG [Suspect]
     Indication: BLOOD CHOLESTEROL INCREASED
     Dosage: 2-1000/40MG DOSE FOR A MONTH
     Dates: start: 2009
  2. SIMCOR 1000MG/40MG [Suspect]
     Dosage: 1000/40MG AT BEDTIME
  3. ASA [Concomitant]
     Indication: PRODUCT USED FOR UNKNOWN INDICATION
     Dosage: BEFORE SIMCOR
  4. COUMADIN [Concomitant]
     Indication: PRODUCT USED FOR UNKNOWN INDICATION
  5. UNKNOWN MEDICATIONS [Concomitant]
     Indication: PRODUCT USED FOR UNKNOWN INDICATION

REACTIONS (1)
  - Pruritus [Recovered/Resolved]
